FAERS Safety Report 7714557-6 (Version None)
Quarter: 2011Q3

REPORT INFORMATION
  Report Type: 
  Country: None (occurrence: None)
  Receive Date: 20110804
  Receipt Date: 20110606
  Transmission Date: 20111222
  Serious: No
  Sender: FDA-Public Use
  Company Number: 2011-07888

PATIENT
  Age: 76 Year
  Sex: Male

DRUGS (1)
  1. RAPAFLO [Suspect]
     Indication: BENIGN PROSTATIC HYPERPLASIA
     Dosage: 8 MG, DAILY (TOOK FOR ONE MONTH), ORAL
     Route: 048
     Dates: start: 20110501, end: 20110605

REACTIONS (3)
  - CONDITION AGGRAVATED [None]
  - COELIAC DISEASE [None]
  - FLATULENCE [None]
